FAERS Safety Report 26191316 (Version 1)
Quarter: 2025Q4

REPORT INFORMATION
  Report Type: Report from Study
  Country: EU (occurrence: EU)
  Receive Date: 20251223
  Receipt Date: 20251223
  Transmission Date: 20260118
  Serious: Yes (Death)
  Sender: CHEPLAPHARM
  Company Number: EU-CHEPLA-2025014376

PATIENT
  Age: 25 Week
  Sex: Male
  Weight: 0.46 kg

DRUGS (1)
  1. VALGANCICLOVIR [Suspect]
     Active Substance: VALGANCICLOVIR
     Indication: Cytomegalovirus infection

REACTIONS (2)
  - Hypoxia [Fatal]
  - Off label use [Recovered/Resolved]
